FAERS Safety Report 9216121 (Version 3)
Quarter: 2013Q4

REPORT INFORMATION
  Report Type: Spontaneous
  Country: US (occurrence: US)
  Receive Date: 20130408
  Receipt Date: 20131209
  Transmission Date: 20140711
  Serious: Yes (Hospitalization, Other)
  Sender: FDA-Public Use
  Company Number: US-JNJFOC-20130401776

PATIENT
  Age: 55 Year
  Sex: Female
  Weight: 63.5 kg

DRUGS (8)
  1. TYLENOL EXTRA STRENGTH [Suspect]
     Route: 048
  2. TYLENOL EXTRA STRENGTH [Suspect]
     Indication: PAIN
     Dosage: 6-8 TABLETS EVERY FEW HOURS
     Route: 048
     Dates: start: 20111026, end: 20111027
  3. TYLENOL PM [Suspect]
     Indication: INSOMNIA
     Route: 048
     Dates: start: 20111026
  4. HYDROCODONE APAP [Suspect]
     Indication: PAIN
     Route: 048
  5. AMBIEN [Concomitant]
     Indication: INSOMNIA
     Route: 065
     Dates: start: 1996
  6. TRAZODONE [Concomitant]
     Indication: DEPRESSION
     Route: 065
     Dates: start: 2000
  7. IMITREX [Concomitant]
     Indication: MIGRAINE
     Route: 065
     Dates: start: 2005, end: 2013
  8. LORATAB [Concomitant]
     Indication: PAIN
     Dates: start: 2009, end: 2011

REACTIONS (8)
  - Coagulopathy [Unknown]
  - Acute hepatic failure [Unknown]
  - Injury [Unknown]
  - Toxicity to various agents [Unknown]
  - Hypotension [Unknown]
  - Abdominal pain [Unknown]
  - Fatigue [Unknown]
  - Anxiety [Unknown]
